FAERS Safety Report 8963997 (Version 1)
Quarter: 2012Q4

REPORT INFORMATION
  Report Type: 
  Country: US (occurrence: US)
  Receive Date: 20121214
  Receipt Date: 20121214
  Transmission Date: 20130627
  Serious: Yes (Other)
  Sender: FDA-Public Use
  Company Number: US-BAYER-2012-131340

PATIENT
  Age: 63 Year
  Sex: Female
  Weight: 104.78 kg

DRUGS (5)
  1. XARELTO [Suspect]
     Indication: VENOUS THROMBOEMBOLISM PROPHYLAXIS
     Dosage: 10 mg, QD
     Route: 048
  2. XARELTO [Suspect]
     Indication: ORTHOPEDIC PROCEDURE
  3. ACETYLSALICYLIC ACID (} 100 MG) [Suspect]
  4. BENICAR [Concomitant]
  5. ANALGESICS [Concomitant]

REACTIONS (2)
  - Haemorrhage [Unknown]
  - Faeces discoloured [Unknown]
